FAERS Safety Report 21826808 (Version 5)
Quarter: 2023Q1

REPORT INFORMATION
  Report Type: Spontaneous
  Country: US (occurrence: US)
  Receive Date: 20230106
  Receipt Date: 20230317
  Transmission Date: 20230418
  Serious: No
  Sender: FDA-Public Use
  Company Number: US-UNITED THERAPEUTICS-UNT-2022-030733

PATIENT
  Sex: Male
  Weight: 115.65 kg

DRUGS (5)
  1. REMODULIN [Suspect]
     Active Substance: TREPROSTINIL
     Indication: Pulmonary arterial hypertension
     Dosage: 0.025 ?G/KG, CONTINUING
     Route: 058
  2. REMODULIN [Suspect]
     Active Substance: TREPROSTINIL
     Dosage: UNK, CONTINUING
     Route: 058
     Dates: start: 20191007
  3. REMODULIN [Suspect]
     Active Substance: TREPROSTINIL
     Indication: Pulmonary arterial hypertension
     Dosage: 0.025 ?G/KG (SELF FILLED WITH 3 ML/CASSETTE AT PUMP RATE 40 MCL/HOUR), CONTINUING
     Route: 058
     Dates: start: 20221215
  4. AMLODIPINE [Concomitant]
     Active Substance: AMLODIPINE BESYLATE
     Indication: Product used for unknown indication
     Dosage: UNK
     Route: 065
  5. AMBRISENTAN [Concomitant]
     Active Substance: AMBRISENTAN
     Indication: Product used for unknown indication
     Dosage: UNK
     Route: 065

REACTIONS (13)
  - Infusion site pain [Recovered/Resolved]
  - Pain in extremity [Not Recovered/Not Resolved]
  - Infusion site irritation [Recovered/Resolved]
  - Device issue [Unknown]
  - Device failure [Recovered/Resolved]
  - Infusion site discharge [Recovered/Resolved]
  - Malaise [Not Recovered/Not Resolved]
  - Abdominal distension [Not Recovered/Not Resolved]
  - Asthenia [Not Recovered/Not Resolved]
  - Infusion site inflammation [Recovered/Resolved]
  - Infusion site infection [Recovered/Resolved]
  - Musculoskeletal chest pain [Unknown]
  - Chest discomfort [Unknown]
